FAERS Safety Report 16815591 (Version 1)
Quarter: 2019Q3

REPORT INFORMATION
  Report Type: Report from Study
  Country: US (occurrence: US)
  Receive Date: 20190917
  Receipt Date: 20190917
  Transmission Date: 20191005
  Serious: Yes (Other)
  Sender: FDA-Public Use
  Company Number: US-ROCHE-2402399

PATIENT
  Sex: Female

DRUGS (4)
  1. OCREVUS [Suspect]
     Active Substance: OCRELIZUMAB
     Indication: RELAPSING-REMITTING MULTIPLE SCLEROSIS
     Dosage: EVERY 6 MONTHS ;ONGOING: YES
     Route: 042
     Dates: start: 201708
  2. AMPYRA [Concomitant]
     Active Substance: DALFAMPRIDINE
     Indication: RELAPSING-REMITTING MULTIPLE SCLEROSIS
     Dosage: TWICE DAILY ;ONGOING: YES
     Route: 065
  3. TINDAMAX [Concomitant]
     Active Substance: TINIDAZOLE
     Route: 065
     Dates: start: 20190714
  4. DECADRON [Concomitant]
     Active Substance: DEXAMETHASONE

REACTIONS (7)
  - Fungal infection [Not Recovered/Not Resolved]
  - Urinary tract infection [Not Recovered/Not Resolved]
  - Memory impairment [Unknown]
  - Trichomoniasis [Recovered/Resolved]
  - Bacterial vaginosis [Recovered/Resolved]
  - Therapy non-responder [Unknown]
  - Malaise [Recovered/Resolved]

NARRATIVE: CASE EVENT DATE: 201905
